FAERS Safety Report 10057759 (Version 1)
Quarter: 2014Q2

REPORT INFORMATION
  Report Type: Spontaneous
  Country: US (occurrence: US)
  Receive Date: 20140404
  Receipt Date: 20140404
  Transmission Date: 20141212
  Serious: No
  Sender: FDA-Public Use
  Company Number: US-BIOGENIDEC-2014BI028282

PATIENT
  Age: 60 Year
  Sex: Female

DRUGS (3)
  1. TECFIDERA [Suspect]
     Indication: MULTIPLE SCLEROSIS
     Route: 048
     Dates: start: 20140310, end: 20140316
  2. TECFIDERA [Suspect]
     Indication: MULTIPLE SCLEROSIS
     Route: 048
     Dates: start: 20140317
  3. NEXIUM [Concomitant]

REACTIONS (5)
  - Dizziness [Unknown]
  - Flushing [Unknown]
  - Nausea [Unknown]
  - Abdominal pain upper [Unknown]
  - Diarrhoea [Unknown]
